FAERS Safety Report 16992367 (Version 1)
Quarter: 2019Q4

REPORT INFORMATION
  Report Type: Spontaneous
  Country: US (occurrence: US)
  Receive Date: 20190920
  Receipt Date: 20190920
  Transmission Date: 20200122
  Serious: Yes (Hospitalization)
  Sender: FDA-Public Use
  Company Number: None

PATIENT
  Age: 25 Year
  Sex: Female
  Weight: 85.2 kg

DRUGS (5)
  1. ONCASPAR [Suspect]
     Active Substance: PEGASPARGASE
     Dates: end: 20190901
  2. VINCRISTINE SULFATE. [Suspect]
     Active Substance: VINCRISTINE SULFATE
     Dates: end: 20190905
  3. DAUNORUBICIN [Suspect]
     Active Substance: DAUNORUBICIN
     Dates: end: 20190905
  4. CYTARABINE. [Suspect]
     Active Substance: CYTARABINE
     Dates: end: 20190826
  5. METHOTREXATE. [Suspect]
     Active Substance: METHOTREXATE
     Dates: end: 20190905

REACTIONS (9)
  - Fatigue [None]
  - Thrombocytosis [None]
  - Depressed level of consciousness [None]
  - Brain stem infarction [None]
  - Haemorrhage intracranial [None]
  - Nausea [None]
  - Vomiting [None]
  - Fall [None]
  - Respiratory failure [None]

NARRATIVE: CASE EVENT DATE: 20190910
